FAERS Safety Report 6230606-9 (Version None)
Quarter: 2009Q2

REPORT INFORMATION
  Report Type: 
  Country: None (occurrence: None)
  Receive Date: 20090611
  Receipt Date: 20090527
  Transmission Date: 20091009
  Serious: Yes (Hospitalization)
  Sender: FDA-Public Use
  Company Number: 8046952

PATIENT
  Age: 81 Year
  Sex: Female
  Weight: 57.6 kg

DRUGS (3)
  1. CIMZIA [Suspect]
     Indication: CROHN'S DISEASE
     Dosage: 400 MG SC
     Route: 058
     Dates: start: 20090101
  2. VITAMIN D [Concomitant]
  3. ANITDIARRHEAL [Concomitant]

REACTIONS (5)
  - BLOOD GLUCOSE DECREASED [None]
  - DRUG DOSE OMISSION [None]
  - INCORRECT STORAGE OF DRUG [None]
  - METABOLIC ACIDOSIS [None]
  - RICKETS [None]
